FAERS Safety Report 5757233-1 (Version None)
Quarter: 2008Q2

REPORT INFORMATION
  Report Type: 
  Country: None (occurrence: None)
  Receive Date: 20080528
  Receipt Date: 20080509
  Transmission Date: 20081010
  Serious: Yes (Hospitalization)
  Sender: FDA-Public Use
  Company Number: 2008AL004378

PATIENT
  Age: 88 Year
  Sex: Female
  Weight: 61.2356 kg

DRUGS (12)
  1. DIGOXIN [Suspect]
     Indication: ATRIAL FIBRILLATION
     Dosage: 0.25 MG., DAILY PO
     Route: 048
  2. COUMADIN [Concomitant]
  3. AVAPRO [Concomitant]
  4. AMITRIPTYLINE HCL [Concomitant]
  5. TRICOR [Concomitant]
  6. LEVOTHYROXINE SODIUM [Concomitant]
  7. LASIX [Concomitant]
  8. ACIPHEX [Concomitant]
  9. GABAPENTIN [Concomitant]
  10. AMITIZA [Concomitant]
  11. CYMBALTA [Concomitant]
  12. TYLENOL [Concomitant]

REACTIONS (4)
  - CARDIOACTIVE DRUG LEVEL INCREASED [None]
  - NAUSEA [None]
  - PNEUMONIA [None]
  - VOMITING [None]
